FAERS Safety Report 6731157-5 (Version None)
Quarter: 2010Q2

REPORT INFORMATION
  Report Type: 
  Country: None (occurrence: None)
  Receive Date: 20100518
  Receipt Date: 20100506
  Transmission Date: 20101027
  Serious: Yes (Other)
  Sender: FDA-Public Use
  Company Number: US-WYE-H15025610

PATIENT
  Sex: Male
  Weight: 88.53 kg

DRUGS (3)
  1. PRISTIQ [Suspect]
     Indication: DEPRESSION
     Dates: start: 20100101
  2. SINEMET [Concomitant]
     Indication: PARKINSON'S DISEASE
     Dosage: UNKNOWN
  3. COMTAN [Concomitant]
     Indication: PARKINSON'S DISEASE
     Dosage: UNKNOWN

REACTIONS (2)
  - CONDITION AGGRAVATED [None]
  - PROSTATIC SPECIFIC ANTIGEN INCREASED [None]
